FAERS Safety Report 6399301-X (Version None)
Quarter: 2009Q4

REPORT INFORMATION
  Report Type: 
  Country: None (occurrence: None)
  Receive Date: 20091014
  Receipt Date: 20070703
  Transmission Date: 20100525
  Serious: No
  Sender: FDA-Public Use
  Company Number: US-ASTRAZENECA-2006UW23213

PATIENT
  Age: 41 Year
  Sex: Female
  Weight: 128 kg

DRUGS (5)
  1. SEROQUEL [Suspect]
     Dosage: 100-600 MG
     Route: 048
     Dates: start: 20020604
  2. DEPAKOTE [Concomitant]
     Route: 048
     Dates: start: 20020624
  3. PREVACID [Concomitant]
     Route: 048
     Dates: start: 20020305
  4. COREG [Concomitant]
     Dosage: 6.25-12.5 MG
     Route: 048
     Dates: start: 20020607
  5. EFFEXOR XR [Concomitant]
     Dosage: 75-150 MG
     Route: 048
     Dates: start: 20020225

REACTIONS (2)
  - DIABETES MELLITUS [None]
  - TYPE 2 DIABETES MELLITUS [None]
